FAERS Safety Report 6442150-4 (Version None)
Quarter: 2009Q4

REPORT INFORMATION
  Report Type: 
  Country: None (occurrence: None)
  Receive Date: 20091116
  Receipt Date: 20091106
  Transmission Date: 20100525
  Serious: Yes (Hospitalization)
  Sender: FDA-Public Use
  Company Number: PHHY2009IT40971

PATIENT
  Sex: Female

DRUGS (2)
  1. VOLTAREN [Suspect]
     Indication: HUMERUS FRACTURE
     Dosage: 200MG DAILY
     Route: 048
     Dates: start: 20090916, end: 20090917
  2. VALSARTAN AND HYDROCHLOROTHIAZIDE [Concomitant]
     Dosage: 160 MG, UNK
     Route: 048

REACTIONS (4)
  - FACE OEDEMA [None]
  - PHARYNGEAL OEDEMA [None]
  - PRURITUS GENERALISED [None]
  - THROAT IRRITATION [None]
